FAERS Safety Report 6835246-6 (Version None)
Quarter: 2010Q3

REPORT INFORMATION
  Report Type: 
  Country: None (occurrence: None)
  Receive Date: 20100713
  Receipt Date: 20100630
  Transmission Date: 20110219
  Serious: Yes (Hospitalization, Other)
  Sender: FDA-Public Use
  Company Number: US-ELI_LILLY_AND_COMPANY-US201006005670

PATIENT
  Sex: Male
  Weight: 77 kg

DRUGS (12)
  1. PEMETREXED [Suspect]
     Indication: NON-SMALL CELL LUNG CANCER
     Dosage: 500 MG/M2, OTHER
     Route: 042
     Dates: start: 20100419, end: 20100601
  2. CARBOPLATIN [Suspect]
     Indication: NON-SMALL CELL LUNG CANCER
     Dosage: 6 D/F, OTHER
     Route: 042
     Dates: start: 20100419, end: 20100601
  3. FOLIC ACID [Concomitant]
     Dates: start: 20100405
  4. VITAMIN B-12 [Concomitant]
     Dates: start: 20100405
  5. EMEND [Concomitant]
     Indication: ANTIEMETIC SUPPORTIVE CARE
     Dates: start: 20100607
  6. CIPROFLOXACIN [Concomitant]
     Indication: ANTIBIOTIC THERAPY
     Dates: start: 20100607
  7. XANAX [Concomitant]
     Indication: ANXIETY DISORDER
  8. ONDANSETRON HYDROCHLORIDE [Concomitant]
     Dates: start: 20100607
  9. VITAMIN K TAB [Concomitant]
     Indication: COAGULOPATHY
     Dates: start: 20100617, end: 20100621
  10. AVODART [Concomitant]
     Dosage: 5 MG, DAILY (1/D)
     Dates: start: 20100616
  11. FLOMAX [Concomitant]
     Dosage: 0.4 MG, DAILY (1/D)
     Dates: start: 20100616
  12. POTASSIUM [Concomitant]
     Dosage: 40 MEQ, DAILY (1/D)
     Dates: start: 20100618

REACTIONS (5)
  - ANAEMIA [None]
  - DEHYDRATION [None]
  - HYPOTENSION [None]
  - MUCOSAL INFLAMMATION [None]
  - PLATELET COUNT DECREASED [None]
